FAERS Safety Report 5439523-5 (Version None)
Quarter: 2007Q3

REPORT INFORMATION
  Report Type: 
  Country: None (occurrence: None)
  Receive Date: 20070831
  Receipt Date: 20070822
  Transmission Date: 20080115
  Serious: Yes (Other)
  Sender: FDA-Public Use
  Company Number: JP-ROCHE-513647

PATIENT
  Age: 1 Year
  Sex: Female

DRUGS (2)
  1. ROCEPHIN [Suspect]
     Indication: BRONCHITIS
     Dosage: DOSE REPORTED AS:  1G BAG
     Route: 042
  2. ZITHROMAC [Concomitant]
     Route: 048

REACTIONS (1)
  - ERYTHEMA MULTIFORME [None]
